FAERS Safety Report 8607607-6 (Version None)
Quarter: 2012Q3

REPORT INFORMATION
  Report Type: 
  Country: None (occurrence: None)
  Receive Date: 20120821
  Receipt Date: 20120813
  Transmission Date: 20120928
  Serious: Yes (Other)
  Sender: FDA-Public Use
  Company Number: US-US-EMD SERONO, INC.-7154540

PATIENT
  Sex: Female

DRUGS (3)
  1. EGRIFTA [Suspect]
     Dates: start: 20120809
  2. UNSPECIFIED MEDICATIONS [Concomitant]
     Indication: PRODUCT USED FOR UNKNOWN INDICATION
  3. EGRIFTA [Suspect]
     Indication: LIPODYSTROPHY ACQUIRED
     Dates: start: 20111101, end: 20111201

REACTIONS (3)
  - RECTAL HAEMORRHAGE [None]
  - INJECTION SITE NODULE [None]
  - INJECTION SITE PRURITUS [None]
